FAERS Safety Report 17540751 (Version 1)
Quarter: 2020Q1

REPORT INFORMATION
  Report Type: Report from Study
  Country: US (occurrence: US)
  Receive Date: 20200313
  Receipt Date: 20200313
  Transmission Date: 20200409
  Serious: Yes (Hospitalization)
  Sender: FDA-Public Use
  Company Number: US-GILEAD-2020-0454858

PATIENT
  Age: 12 Year
  Sex: Female

DRUGS (22)
  1. AZTREONAM LYSINE [Suspect]
     Active Substance: AZTREONAM LYSINE
     Indication: CYSTIC FIBROSIS LUNG
     Dosage: 75 MG, TID; 28 DAYS ON, 28 DAYS OFF
     Route: 055
     Dates: start: 20140520
  2. CREON [Concomitant]
     Active Substance: PANCRELIPASE AMYLASE\PANCRELIPASE LIPASE\PANCRELIPASE PROTEASE
  3. OMEPRAZOLE. [Concomitant]
     Active Substance: OMEPRAZOLE
  4. SODIUM CHLORIDE. [Concomitant]
     Active Substance: SODIUM CHLORIDE
  5. TRIKAFTA [Concomitant]
     Active Substance: ELEXACAFTOR\IVACAFTOR\TEZACAFTOR
  6. COLISTIMETHATE [COLISTIMETHATE SODIUM] [Concomitant]
     Active Substance: COLISTIMETHATE SODIUM
  7. CYPROHEPTADINE. [Concomitant]
     Active Substance: CYPROHEPTADINE
  8. PREDNISONE. [Concomitant]
     Active Substance: PREDNISONE
  9. SYMBICORT [Concomitant]
     Active Substance: BUDESONIDE\FORMOTEROL FUMARATE DIHYDRATE
  10. AZITHROMYCIN ANHYDROUS. [Concomitant]
     Active Substance: AZITHROMYCIN ANHYDROUS
  11. BUSPIRONE [Concomitant]
     Active Substance: BUSPIRONE HYDROCHLORIDE
  12. PROAIR HFA [Concomitant]
     Active Substance: ALBUTEROL SULFATE
  13. PULMOZYME [Concomitant]
     Active Substance: DORNASE ALFA
  14. OXCARBAZEPINE. [Concomitant]
     Active Substance: OXCARBAZEPINE
  15. ALBUTEROL [SALBUTAMOL] [Concomitant]
     Active Substance: ALBUTEROL
  16. AQUADEKS [Concomitant]
     Active Substance: MINERALS\VITAMINS
  17. VITAMIN D3 [Concomitant]
     Active Substance: CHOLECALCIFEROL
  18. FLUOXETINE [Concomitant]
     Active Substance: FLUOXETINE HYDROCHLORIDE
  19. LORATADINE. [Concomitant]
     Active Substance: LORATADINE
  20. MIDAZOLAM HYDROCHLORIDE. [Concomitant]
     Active Substance: MIDAZOLAM HYDROCHLORIDE
  21. CEFDINIR. [Concomitant]
     Active Substance: CEFDINIR
  22. LEVETIRACETAM. [Concomitant]
     Active Substance: LEVETIRACETAM

REACTIONS (1)
  - Influenza [Recovered/Resolved]

NARRATIVE: CASE EVENT DATE: 202002
